FAERS Safety Report 24684858 (Version 1)
Quarter: 2024Q4

REPORT INFORMATION
  Report Type: Spontaneous
  Country: GB (occurrence: GB)
  Receive Date: 20241202
  Receipt Date: 20241202
  Transmission Date: 20250115
  Serious: Yes (Life-Threatening)
  Sender: SANDOZ
  Company Number: None

PATIENT
  Age: 66 Year
  Sex: Male
  Weight: 64 kg

DRUGS (7)
  1. ROSUVASTATIN [Suspect]
     Active Substance: ROSUVASTATIN
     Indication: Product used for unknown indication
     Dosage: ONE TO BE TAKEN EACH DAY
     Route: 065
  2. AMOXICILLIN [Concomitant]
     Active Substance: AMOXICILLIN
     Indication: Lung consolidation
     Dosage: ONE TO BE TAKEN THREE TIMES A DAY
     Route: 065
     Dates: start: 20240828, end: 20240926
  3. ATORVASTATIN [Concomitant]
     Active Substance: ATORVASTATIN
     Indication: Product used for unknown indication
     Dosage: ONE TO BE TAKEN AT BEDTIME
     Route: 065
     Dates: start: 20241008, end: 20241024
  4. Comirnaty [Concomitant]
     Indication: Product used for unknown indication
     Dosage: 0.3 ML INTRAMUSCULAR (JN.1 COVID-19 MRNA VACCINE)
     Route: 030
     Dates: start: 20241102, end: 20241102
  5. MEBEVERINE [Concomitant]
     Active Substance: MEBEVERINE
     Indication: Abdominal pain
     Dosage: ONE TO BE TAKEN THREE TIMES A DAY TWENTY MINUTES BEFORE FOOD
     Route: 065
     Dates: start: 20240903
  6. PREDNISOLONE [Concomitant]
     Active Substance: PREDNISOLONE
     Indication: Adverse drug reaction
     Dosage: SIX TO BE TAKEN EACH DAY
     Route: 065
     Dates: start: 20240828, end: 20240926
  7. PREDNISOLONE [Concomitant]
     Active Substance: PREDNISOLONE
     Dosage: SIX TO BE TAKEN EACH DAY
     Route: 065
     Dates: start: 20241016, end: 20241114

REACTIONS (1)
  - Dyspnoea [Recovered/Resolved]

NARRATIVE: CASE EVENT DATE: 20241015
